FAERS Safety Report 5800611-2 (Version None)
Quarter: 2008Q3

REPORT INFORMATION
  Report Type: 
  Country: None (occurrence: None)
  Receive Date: 20080703
  Receipt Date: 20080703
  Transmission Date: 20090109
  Serious: Yes (Other)
  Sender: FDA-Public Use
  Company Number: GB-BAUSCH-2008BL002730

PATIENT
  Age: 72 Year
  Sex: Female

DRUGS (1)
  1. MINIMS TROPICAMIDE 0.5% [Suspect]
     Indication: MYDRIASIS
     Route: 047

REACTIONS (4)
  - COUGH [None]
  - DRY THROAT [None]
  - DYSPHONIA [None]
  - REACTION TO PRESERVATIVES [None]
